FAERS Safety Report 12958508 (Version 2)
Quarter: 2017Q2

REPORT INFORMATION
  Report Type: Report from Study
  Country: None (occurrence: US)
  Receive Date: 20161121
  Receipt Date: 20170531
  Transmission Date: 20170830
  Serious: Yes (Other)
  Sender: FDA-Public Use
  Company Number: US-ABBVIE-16K-163-1781333-00

PATIENT
  Age: 31 Year
  Sex: Female

DRUGS (1)
  1. HUMIRA [Suspect]
     Active Substance: ADALIMUMAB
     Indication: CROHN^S DISEASE
     Route: 058

REACTIONS (6)
  - Headache [Unknown]
  - Haemorrhoids [Unknown]
  - Musculoskeletal stiffness [Unknown]
  - Cholecystectomy [Recovering/Resolving]
  - Colectomy [Unknown]
  - Pain [Unknown]

NARRATIVE: CASE EVENT DATE: 20161109
